FAERS Safety Report 25353114 (Version 2)
Quarter: 2025Q3

REPORT INFORMATION
  Report Type: Spontaneous
  Country: US (occurrence: US)
  Receive Date: 20250523
  Receipt Date: 20250805
  Transmission Date: 20251021
  Serious: No
  Sender: PFIZER
  Company Number: US-PFIZER INC-PV202500060454

PATIENT
  Age: 50 Year
  Sex: Female

DRUGS (10)
  1. DOCETAXEL [Suspect]
     Active Substance: DOCETAXEL
     Indication: Breast cancer female
     Dates: start: 20200511, end: 20200824
  2. CYTOXAN [Concomitant]
     Active Substance: CYCLOPHOSPHAMIDE
     Indication: Chemotherapy
  3. SPIRONOLACTONE [Concomitant]
     Active Substance: SPIRONOLACTONE
     Dates: start: 2017, end: 2022
  4. TORSEMIDE [Concomitant]
     Active Substance: TORSEMIDE
     Dates: start: 2017
  5. LANTUS [Concomitant]
     Active Substance: INSULIN GLARGINE
     Dates: start: 2020
  6. TRULICITY [Concomitant]
     Active Substance: DULAGLUTIDE
     Dates: start: 2020, end: 2024
  7. CARVEDILOL [Concomitant]
     Active Substance: CARVEDILOL
     Dates: start: 2007
  8. LISINOPRIL [Concomitant]
     Active Substance: LISINOPRIL
     Dates: start: 2007, end: 2023
  9. LYRICA [Concomitant]
     Active Substance: PREGABALIN
     Dates: start: 2020
  10. ZOFRAN [Concomitant]
     Active Substance: ONDANSETRON HYDROCHLORIDE
     Dates: start: 2020

REACTIONS (4)
  - Dry eye [Unknown]
  - Keratitis [Not Recovered/Not Resolved]
  - Lacrimal structure injury [Not Recovered/Not Resolved]
  - Lacrimation increased [Not Recovered/Not Resolved]

NARRATIVE: CASE EVENT DATE: 20200101
